FAERS Safety Report 11037400 (Version 2)
Quarter: 2015Q2

REPORT INFORMATION
  Report Type: Spontaneous
  Country: US (occurrence: US)
  Receive Date: 20150416
  Receipt Date: 20150615
  Transmission Date: 20150821
  Serious: No
  Sender: FDA-Public Use
  Company Number: US-009507513-1504USA004830

PATIENT
  Age: 72 Year
  Sex: Male
  Weight: 74.83 kg

DRUGS (1)
  1. HOMOSALATE(+) OCTINOXATE(+) OCTISALATE(+) OCTOCRYLENE(+) OXYBENZONE [Suspect]
     Active Substance: HOMOSALATE\OCTINOXATE\OCTISALATE\OCTOCRYLENE\OXYBENZONE
     Indication: PHOTODERMATOSIS
     Dosage: UNK, PRN, 1 UNIT
     Route: 061
     Dates: start: 2000

REACTIONS (1)
  - Drug ineffective [Unknown]

NARRATIVE: CASE EVENT DATE: 20150406
